FAERS Safety Report 9845546 (Version 2)
Quarter: 2014Q1

REPORT INFORMATION
  Report Type: Report from Study
  Country: DE (occurrence: DE)
  Receive Date: 20140127
  Receipt Date: 20140127
  Transmission Date: 20141002
  Serious: Yes (Hospitalization)
  Sender: FDA-Public Use
  Company Number: DE-JNJFOC-20121006486

PATIENT
  Age: 62 Year
  Sex: Female
  Weight: 62 kg

DRUGS (1)
  1. DARUNAVIR [Suspect]
     Indication: HIV INFECTION
     Route: 048
     Dates: start: 20120418

REACTIONS (1)
  - Encephalomyelitis [Recovered/Resolved]
